FAERS Safety Report 5250146-3 (Version None)
Quarter: 2007Q1

REPORT INFORMATION
  Report Type: 
  Country: None (occurrence: None)
  Receive Date: 20070228
  Receipt Date: 20060227
  Transmission Date: 20070707
  Serious: No
  Sender: FDA-Public Use
  Company Number: US-GLAXOSMITHKLINE-A0593492A

PATIENT
  Age: 27 Year
  Sex: Female

DRUGS (6)
  1. LAMICTAL [Suspect]
     Dosage: 1TAB TWICE PER DAY
     Route: 048
     Dates: start: 20050901
  2. SEROQUEL [Concomitant]
  3. PROVENTIL [Concomitant]
  4. ABILIFY [Concomitant]
  5. AMBIEN [Concomitant]
  6. PROTONIX [Concomitant]

REACTIONS (4)
  - DEPRESSION [None]
  - DIZZINESS [None]
  - ERYTHEMA [None]
  - RASH [None]
